FAERS Safety Report 4746473-6 (Version None)
Quarter: 2005Q3

REPORT INFORMATION
  Report Type: 
  Country: None (occurrence: None)
  Receive Date: 20050815
  Receipt Date: 20050803
  Transmission Date: 20060218
  Serious: Yes (Hospitalization)
  Sender: FDA-Public Use
  Company Number: EWC050845280

PATIENT
  Age: 78 Year
  Sex: Female
  Weight: 40 kg

DRUGS (2)
  1. FORTEO [Suspect]
     Indication: OSTEOPOROSIS
     Dosage: 20 UG/1 DAY
     Dates: start: 20050718, end: 20050726
  2. ANTIASTHMATIC [Concomitant]

REACTIONS (1)
  - INTESTINAL OBSTRUCTION [None]
